FAERS Safety Report 8429077-3 (Version None)
Quarter: 2012Q2

REPORT INFORMATION
  Report Type: 
  Country: None (occurrence: None)
  Receive Date: 20120612
  Receipt Date: 20120531
  Transmission Date: 20120825
  Serious: Yes (Other)
  Sender: FDA-Public Use
  Company Number: JP-JNJFOC-20111202436

PATIENT
  Sex: Female
  Weight: 44 kg

DRUGS (2)
  1. MERCAPTOPURINE [Concomitant]
     Indication: CROHN'S DISEASE
     Route: 048
     Dates: end: 20060808
  2. REMICADE [Suspect]
     Indication: CROHN'S DISEASE
     Route: 042

REACTIONS (3)
  - MATERNAL EXPOSURE DURING PREGNANCY [None]
  - CROHN'S DISEASE [None]
  - ABORTION INDUCED [None]
